FAERS Safety Report 9216973 (Version 5)
Quarter: 2013Q3

REPORT INFORMATION
  Report Type: Spontaneous
  Country: CO (occurrence: CO)
  Receive Date: 20130408
  Receipt Date: 20130712
  Transmission Date: 20140515
  Serious: Yes (Hospitalization)
  Sender: FDA-Public Use
  Company Number: CO-NOVOPROD-374731

PATIENT
  Age: 20 Year
  Sex: Female
  Weight: 59 kg

DRUGS (2)
  1. NOVORAPID FLEXPEN [Suspect]
     Indication: TYPE 1 DIABETES MELLITUS
     Dosage: 24 IU, QD
     Route: 065
     Dates: start: 20130215
  2. OVULES PHARMATEX [Concomitant]
     Dosage: UNK
     Route: 065

REACTIONS (5)
  - Hyperemesis gravidarum [Unknown]
  - Urosepsis [Unknown]
  - Diabetes mellitus inadequate control [Unknown]
  - Hypersensitivity [Recovered/Resolved]
  - Exposure during pregnancy [Unknown]
